FAERS Safety Report 5854913-4 (Version None)
Quarter: 2008Q3

REPORT INFORMATION
  Report Type: 
  Country: None (occurrence: None)
  Receive Date: 20080822
  Receipt Date: 20080317
  Transmission Date: 20090109
  Serious: No
  Sender: FDA-Public Use
  Company Number: US-ABBOTT-08P-163-0443488-00

PATIENT
  Sex: Female
  Weight: 63.56 kg

DRUGS (3)
  1. SYNTHROID [Suspect]
     Indication: HYPOTHYROIDISM
     Route: 048
     Dates: end: 19960101
  2. SYNTHROID [Suspect]
     Route: 048
     Dates: start: 19960101
  3. SYNTHROID [Suspect]
     Route: 048
     Dates: start: 20050101

REACTIONS (5)
  - FATIGUE [None]
  - FIBROMYALGIA [None]
  - INSOMNIA [None]
  - PAIN [None]
  - POOR QUALITY SLEEP [None]
